FAERS Safety Report 16285623 (Version 4)
Quarter: 2020Q1

REPORT INFORMATION
  Report Type: Report from Study
  Country: CO (occurrence: CO)
  Receive Date: 20190508
  Receipt Date: 20200116
  Transmission Date: 20200409
  Serious: Yes (Hospitalization, Other)
  Sender: FDA-Public Use
  Company Number: CO-ASTELLAS-2019US019436

PATIENT
  Age: 60 Year
  Sex: Female

DRUGS (13)
  1. TACROLIMUS. [Interacting]
     Active Substance: TACROLIMUS
     Dosage: 6 MG, ONCE DAILY (6 CAPSULES OF 1MG)
     Route: 048
     Dates: start: 201905, end: 201908
  2. TACROLIMUS. [Interacting]
     Active Substance: TACROLIMUS
     Dosage: 2 MG, ONCE DAILY (2 CAPSULES OF 1MG)
     Route: 048
     Dates: start: 201908, end: 20191223
  3. TACROLIMUS. [Interacting]
     Active Substance: TACROLIMUS
     Dosage: 3 MG, ONCE DAILY (3 CAPSULES OF 1MG)
     Route: 048
     Dates: start: 20191224
  4. ITRACONAZOLE. [Interacting]
     Active Substance: ITRACONAZOLE
     Dosage: 20 CC, EVERY 12 HOURS
     Route: 048
     Dates: end: 201911
  5. FLUOXETINE [Concomitant]
     Active Substance: FLUOXETINE HYDROCHLORIDE
     Indication: PRODUCT USED FOR UNKNOWN INDICATION
     Dosage: UNK UNK, UNKNOWN FREQ.
     Route: 065
  6. TACROLIMUS. [Suspect]
     Active Substance: TACROLIMUS
     Indication: RENAL TRANSPLANT
     Route: 048
     Dates: start: 20100415, end: 20190519
  7. TACROLIMUS. [Interacting]
     Active Substance: TACROLIMUS
     Dosage: 2 MG, ONCE DAILY (2 CAPSULES OF 1 MG)
     Route: 048
     Dates: start: 20190520
  8. AZATHIOPRINE. [Concomitant]
     Active Substance: AZATHIOPRINE
     Indication: PRODUCT USED FOR UNKNOWN INDICATION
     Route: 048
  9. ITRACONAZOLE. [Interacting]
     Active Substance: ITRACONAZOLE
     Indication: PNEUMONIA
     Route: 048
     Dates: start: 201903
  10. LOSARTAN. [Concomitant]
     Active Substance: LOSARTAN
     Indication: PRODUCT USED FOR UNKNOWN INDICATION
     Dosage: UNK UNK, UNKNOWN FREQ.
     Route: 065
  11. TACROLIMUS. [Interacting]
     Active Substance: TACROLIMUS
     Dosage: 3 MG, ONCE DAILY (3 CAPSULES OF 1MG)
     Route: 048
     Dates: end: 201905
  12. METHYLPREDNISOLONE. [Concomitant]
     Active Substance: METHYLPREDNISOLONE
     Indication: PRODUCT USED FOR UNKNOWN INDICATION
     Dosage: 4 MG, ONCE DAILY (STARTED 6 MONTHS AGO)
     Route: 048
  13. VERAPAMIL [Concomitant]
     Active Substance: VERAPAMIL HYDROCHLORIDE
     Indication: PRODUCT USED FOR UNKNOWN INDICATION
     Dosage: UNK UNK, UNKNOWN FREQ.
     Route: 065

REACTIONS (7)
  - Angina pectoris [Recovered/Resolved]
  - Drug interaction [Recovered/Resolved]
  - Intracardiac mass [Recovered/Resolved]
  - Asphyxia [Recovering/Resolving]
  - Immunosuppressant drug level increased [Recovered/Resolved]
  - Pulmonary mass [Not Recovered/Not Resolved]
  - Lower respiratory tract infection fungal [Recovered/Resolved]

NARRATIVE: CASE EVENT DATE: 20190327
